FAERS Safety Report 25774801 (Version 2)
Quarter: 2025Q3

REPORT INFORMATION
  Report Type: Spontaneous
  Country: KE (occurrence: KE)
  Receive Date: 20250908
  Receipt Date: 20250909
  Transmission Date: 20251021
  Serious: Yes (Other)
  Sender: ABBVIE
  Company Number: KE-ABBVIE-6449469

PATIENT
  Sex: Male

DRUGS (4)
  1. SURVANTA [Suspect]
     Active Substance: BERACTANT
     Indication: Neonatal respiratory distress syndrome
     Route: 037
     Dates: start: 20250707, end: 20250707
  2. CAFFEINE CITRATE [Concomitant]
     Active Substance: CAFFEINE CITRATE
     Indication: Infantile apnoea
     Route: 042
     Dates: start: 20250707
  3. Benzylpennicillin [Concomitant]
     Indication: Infant
     Route: 042
     Dates: start: 20250707
  4. GENTAMICIN [Concomitant]
     Active Substance: GENTAMICIN
     Indication: Sepsis neonatal
     Route: 042
     Dates: start: 20250707

REACTIONS (2)
  - Pneumothorax [Recovered/Resolved]
  - Liquid product physical issue [Unknown]

NARRATIVE: CASE EVENT DATE: 20250501
